FAERS Safety Report 17406989 (Version 1)
Quarter: 2020Q1

REPORT INFORMATION
  Report Type: Spontaneous
  Country: US (occurrence: US)
  Receive Date: 20200212
  Receipt Date: 20200212
  Transmission Date: 20200409
  Serious: No
  Sender: FDA-Public Use
  Company Number: US-EMD SERONO-9144982

PATIENT
  Sex: Female

DRUGS (1)
  1. REBIF [Suspect]
     Active Substance: INTERFERON BETA-1A
     Indication: MULTIPLE SCLEROSIS
     Dosage: 0.5 ML
     Route: 058
     Dates: start: 20190627

REACTIONS (3)
  - Hypersensitivity [Unknown]
  - Pain [Unknown]
  - Hypersomnia [Unknown]
